FAERS Safety Report 4774023-7 (Version None)
Quarter: 2005Q3

REPORT INFORMATION
  Report Type: 
  Country: None (occurrence: None)
  Receive Date: 20050919
  Receipt Date: 20050907
  Transmission Date: 20060218
  Serious: Yes (Life-Threatening, Hospitalization)
  Sender: FDA-Public Use
  Company Number: FRWYE918419AUG05

PATIENT
  Age: 68 Year
  Sex: Female

DRUGS (4)
  1. TAZOCILLINE (PIPERACILLIN/TAZOBACTAM, INJECTION) [Suspect]
     Dosage: 12 G 1X PER 1 DAY
     Dates: end: 20050101
  2. OMEPRAZOLE [Suspect]
     Dosage: ORAL
     Route: 048
  3. MOTILIUM [Concomitant]
  4. TRIFLUCAN (FLUCONAZOLE) [Concomitant]

REACTIONS (6)
  - BONE MARROW TOXICITY [None]
  - GRANULOCYTES ABNORMAL [None]
  - MEGAKARYOCYTES ABNORMAL [None]
  - PANCYTOPENIA [None]
  - PYREXIA [None]
  - RESPIRATORY DISTRESS [None]
